FAERS Safety Report 6511139-9 (Version None)
Quarter: 2009Q4

REPORT INFORMATION
  Report Type: 
  Country: None (occurrence: None)
  Receive Date: 20091222
  Receipt Date: 20091216
  Transmission Date: 20100525
  Serious: Yes (Hospitalization)
  Sender: FDA-Public Use
  Company Number: US-ASTRAZENECA-2009SE32477

PATIENT
  Age: 30 Year
  Sex: Male

DRUGS (5)
  1. SEROQUEL [Suspect]
     Indication: MOOD SWINGS
     Dosage: TOTAL DAILY DOSE 800 MG, THREE TIMES A DAY (200 MG AM, 200 MG PM, 400 MG HS)
     Route: 048
  2. SEROQUEL [Suspect]
     Indication: ANXIETY
     Dosage: TOTAL DAILY DOSE 800 MG, THREE TIMES A DAY (200 MG AM, 200 MG PM, 400 MG HS)
     Route: 048
  3. ZOLOFT [Concomitant]
  4. CLONOPIN [Concomitant]
  5. OXZARBAZEPINE [Concomitant]

REACTIONS (2)
  - AGGRESSION [None]
  - DRUG DOSE OMISSION [None]
